FAERS Safety Report 14398293 (Version 1)
Quarter: 2018Q1

REPORT INFORMATION
  Report Type: Spontaneous
  Country: FR (occurrence: FR)
  Receive Date: 20180116
  Receipt Date: 20180116
  Transmission Date: 20180509
  Serious: Yes (Hospitalization)
  Sender: FDA-Public Use
  Company Number: FR-MERCK KGAA-2040119

PATIENT
  Sex: Female

DRUGS (1)
  1. NOVOTHYROX [Suspect]
     Active Substance: LEVOTHYROXINE SODIUM
     Indication: AUTOIMMUNE THYROIDITIS
     Dates: start: 2017

REACTIONS (11)
  - Spinal fracture [None]
  - Mouth haemorrhage [None]
  - Haematoma [None]
  - Dyspnoea [None]
  - Back pain [None]
  - Wound haemorrhage [None]
  - Fall [Recovering/Resolving]
  - Pain [None]
  - Palpitations [Recovered/Resolved]
  - Rib fracture [None]
  - Dizziness [None]

NARRATIVE: CASE EVENT DATE: 2017
